FAERS Safety Report 6456143-4 (Version None)
Quarter: 2009Q4

REPORT INFORMATION
  Report Type: 
  Country: None (occurrence: None)
  Receive Date: 20091125
  Receipt Date: 20091113
  Transmission Date: 20100525
  Serious: Yes (Other)
  Sender: FDA-Public Use
  Company Number: AU-MYLANLABS-2009S1019741

PATIENT
  Age: 47 Year
  Sex: Female

DRUGS (1)
  1. PAXAM [Suspect]
     Indication: RESTLESS LEGS SYNDROME
     Route: 048
     Dates: start: 20091101

REACTIONS (3)
  - CONTUSION [None]
  - DEPRESSION [None]
  - PRURITUS [None]
